FAERS Safety Report 4458217-6 (Version None)
Quarter: 2004Q3

REPORT INFORMATION
  Report Type: 
  Country: None (occurrence: None)
  Receive Date: 20040917
  Receipt Date: 20040405
  Transmission Date: 20050211
  Serious: Yes (Other)
  Sender: FDA-Public Use
  Company Number: US-JNJFOC-20040303815

PATIENT
  Age: 21 Year
  Sex: Female
  Weight: 99.7913 kg

DRUGS (3)
  1. TOPAMAX [Suspect]
     Dosage: 50 MG, 2 IN 1 DAY, ORAL
     Route: 048
  2. CELEXA [Concomitant]
  3. CRESTOR (ALL THERAPEUTIC PRODUCTS) TABLETS [Concomitant]

REACTIONS (2)
  - BLOOD BICARBONATE DECREASED [None]
  - HYPERTENSION [None]
